FAERS Safety Report 25615192 (Version 1)
Quarter: 2025Q3

REPORT INFORMATION
  Report Type: Spontaneous
  Country: EU (occurrence: EU)
  Receive Date: 20250729
  Receipt Date: 20250729
  Transmission Date: 20251020
  Serious: Yes (Other)
  Sender: CELLTRION
  Company Number: EU-ROCHE-10000253687

PATIENT

DRUGS (4)
  1. TRASTUZUMAB [Suspect]
     Active Substance: TRASTUZUMAB
     Indication: Breast cancer stage IV
     Route: 065
     Dates: start: 202111
  2. PERTUZUMAB [Suspect]
     Active Substance: PERTUZUMAB
     Indication: Breast cancer stage IV
     Route: 065
     Dates: start: 202111
  3. DOCETAXEL [Suspect]
     Active Substance: DOCETAXEL
     Indication: Breast cancer stage IV
     Route: 065
     Dates: start: 202111
  4. ADO-TRASTUZUMAB EMTANSINE [Concomitant]
     Active Substance: ADO-TRASTUZUMAB EMTANSINE
     Indication: Breast cancer stage IV
     Dosage: 291 MG EVERY 2 WEEKS
     Route: 042
     Dates: start: 20220707

REACTIONS (4)
  - Breast cancer metastatic [Unknown]
  - Lymphangiosis carcinomatosa [Unknown]
  - Liver disorder [Unknown]
  - Lung disorder [Unknown]
